FAERS Safety Report 15263797 (Version 12)
Quarter: 2019Q3

REPORT INFORMATION
  Report Type: Report from Study
  Country: DE (occurrence: DE)
  Receive Date: 20180810
  Receipt Date: 20190724
  Transmission Date: 20191004
  Serious: Yes (Other)
  Sender: FDA-Public Use
  Company Number: DE-ROCHE-2126374

PATIENT
  Age: 37 Year
  Sex: Female
  Weight: 60 kg

DRUGS (14)
  1. OCREVUS [Suspect]
     Active Substance: OCRELIZUMAB
     Indication: RELAPSING-REMITTING MULTIPLE SCLEROSIS
     Dosage: SECOND INFUSION ON 22/MAY/2018
     Route: 042
     Dates: start: 20180508
  2. OXCARBAZEPIN [Concomitant]
     Active Substance: OXCARBAZEPINE
     Dosage: 150 MG-0-100 MG
     Route: 065
  3. NORSPAN [Concomitant]
     Active Substance: BUPRENORPHINE
     Indication: PAIN
     Dosage: WEEKLY REPLACEMENT
     Route: 062
  4. OCREVUS [Suspect]
     Active Substance: OCRELIZUMAB
     Dosage: NEXT INFUSION ON 06/MAY/2019
     Route: 042
     Dates: start: 20181126
  5. LYRICA [Suspect]
     Active Substance: PREGABALIN
     Dosage: 50 MG IN THE MORNING, 75 MG IN THE EVENING
     Route: 048
  6. LYRICA [Suspect]
     Active Substance: PREGABALIN
     Route: 048
  7. CARVEDILOL. [Concomitant]
     Active Substance: CARVEDILOL
     Indication: HYPERTENSION
     Dosage: 1-0-0
     Route: 065
  8. BACLOFEN. [Concomitant]
     Active Substance: BACLOFEN
     Indication: MUSCLE SPASTICITY
     Dosage: 0-0-1
     Route: 065
  9. L-THYROXINE [LEVOTHYROXINE] [Concomitant]
     Active Substance: LEVOTHYROXINE
     Dosage: 1-0-0
     Route: 065
  10. LYRICA [Suspect]
     Active Substance: PREGABALIN
     Indication: PAIN
     Dosage: 100MG-0-150MG
     Route: 048
  11. OXCARBAZEPIN [Concomitant]
     Active Substance: OXCARBAZEPINE
     Indication: PAIN
     Dosage: 1-0-1
     Route: 065
  12. LYRICA [Suspect]
     Active Substance: PREGABALIN
     Dosage: 25 MG IN THE MORNING, 75 MG IN THE EVENING
     Route: 048
  13. PARACODIN [DIHYDROCODEINE] [Concomitant]
  14. LYRICA [Suspect]
     Active Substance: PREGABALIN
     Dosage: 75MG-0-125MG
     Route: 048
     Dates: start: 20190308

REACTIONS (22)
  - Hypersensitivity [Recovered/Resolved]
  - Fatigue [Recovered/Resolved]
  - Trigeminal neuralgia [Recovered/Resolved]
  - Eczema [Recovered/Resolved]
  - Pulpitis dental [Recovered/Resolved]
  - Abscess [Recovered/Resolved]
  - Multiple sclerosis [Recovering/Resolving]
  - Drug ineffective [Unknown]
  - Oedema [Not Recovered/Not Resolved]
  - Hypotension [Not Recovered/Not Resolved]
  - Abscess oral [Recovered/Resolved]
  - Abdominal pain upper [Recovered/Resolved]
  - Tooth fracture [Recovered/Resolved]
  - Weight increased [Not Recovered/Not Resolved]
  - Bladder disorder [Unknown]
  - Viral titre decreased [Not Recovered/Not Resolved]
  - Fatigue [Not Recovered/Not Resolved]
  - Nausea [Recovered/Resolved]
  - Vocal cord inflammation [Recovered/Resolved]
  - Menstruation delayed [Recovered/Resolved]
  - Multiple sclerosis relapse [Not Recovered/Not Resolved]
  - Agitation [Recovered/Resolved]

NARRATIVE: CASE EVENT DATE: 20180508
